FAERS Safety Report 6204792-0 (Version None)
Quarter: 2009Q2

REPORT INFORMATION
  Report Type: 
  Country: None (occurrence: None)
  Receive Date: 20090522
  Receipt Date: 20090504
  Transmission Date: 20091009
  Serious: Yes (Hospitalization)
  Sender: FDA-Public Use
  Company Number: US023593

PATIENT
  Age: 56 Year
  Sex: Male
  Weight: 80.7403 kg

DRUGS (8)
  1. PROVIGIL [Suspect]
     Indication: DRUG DEPENDENCE
     Dosage: 200 MG (200 MG, 1 IN 1 D), ORAL
     Route: 048
     Dates: start: 20080502
  2. TRUVADA [Concomitant]
  3. NORVIR [Concomitant]
  4. ZERIT [Concomitant]
  5. PAXIL [Concomitant]
  6. SEROQUEL [Concomitant]
  7. PREZISTA [Suspect]
  8. MARIJUANA (CANNABIS SATIVA) [Suspect]

REACTIONS (11)
  - BLOOD LACTATE DEHYDROGENASE INCREASED [None]
  - BLOOD SODIUM DECREASED [None]
  - CHEST PAIN [None]
  - FIBRIN D DIMER INCREASED [None]
  - HAEMOGLOBIN DECREASED [None]
  - HYPOAESTHESIA [None]
  - OTITIS EXTERNA [None]
  - PERICARDIAL DISEASE [None]
  - PLEURITIC PAIN [None]
  - PNEUMOCYSTIS JIROVECI PNEUMONIA [None]
  - QRS AXIS ABNORMAL [None]
